FAERS Safety Report 7762816-3 (Version None)
Quarter: 2011Q3

REPORT INFORMATION
  Report Type: 
  Country: None (occurrence: None)
  Receive Date: 20110920
  Receipt Date: 20110915
  Transmission Date: 20111222
  Serious: Yes (Other)
  Sender: FDA-Public Use
  Company Number: US-MERCK-1109USA01756

PATIENT
  Sex: Female

DRUGS (2)
  1. FOSAMAX [Suspect]
     Route: 048
     Dates: start: 19990101, end: 20090901
  2. FOSAMAX [Suspect]
     Route: 048
     Dates: start: 19990101, end: 20090901

REACTIONS (1)
  - FEMUR FRACTURE [None]
